FAERS Safety Report 21818558 (Version 1)
Quarter: 2023Q1

REPORT INFORMATION
  Report Type: Spontaneous
  Country: US (occurrence: US)
  Receive Date: 20230104
  Receipt Date: 20230104
  Transmission Date: 20230418
  Serious: Yes (Hospitalization)
  Sender: FDA-Public Use
  Company Number: US-BRISTOL-MYERS SQUIBB COMPANY-2023-001161

PATIENT
  Age: 67 Year
  Sex: Male

DRUGS (1)
  1. POMALYST [Suspect]
     Active Substance: POMALIDOMIDE
     Indication: Plasma cell myeloma
     Dosage: FREQUENCY- DAILY MONDAY-FRIDAY FOR 3 WEEKS ON AND 1 WEEK OFF.
     Route: 048
     Dates: start: 20211203

REACTIONS (2)
  - Pyrexia [Recovered/Resolved]
  - Off label use [Unknown]
